FAERS Safety Report 9394770 (Version 1)
Quarter: 2013Q3

REPORT INFORMATION
  Report Type: Spontaneous
  Country: DE (occurrence: None)
  Receive Date: 20130705
  Receipt Date: 20130705
  Transmission Date: 20140515
  Serious: Yes (Hospitalization)
  Sender: FDA-Public Use
  Company Number: FK201302294

PATIENT
  Age: 73 Year
  Sex: Male

DRUGS (2)
  1. LEVETIRACETAM (MANUFACTURER UNKNOWN) (LEVETIRACETAM) (LEVETIRACETAM) [Suspect]
     Indication: PARTIAL SEIZURES WITH SECONDARY GENERALISATION
  2. PERITONEAL DIALYSIS (DIANEAL GLUCOSA) [Concomitant]

REACTIONS (6)
  - Stupor [None]
  - Foot fracture [None]
  - Fatigue [None]
  - Somnolence [None]
  - Overdose [None]
  - Anticonvulsant drug level increased [None]
